FAERS Safety Report 17430768 (Version 1)
Quarter: 2020Q1

REPORT INFORMATION
  Report Type: Other
  Country: CA (occurrence: CA)
  Receive Date: 20200218
  Receipt Date: 20200218
  Transmission Date: 20200409
  Serious: Yes (Other)
  Sender: FDA-Public Use
  Company Number: CA-BECTON DICKINSON-2020BDN00051

PATIENT
  Age: 42 Year
  Sex: Female
  Weight: 81 kg

DRUGS (32)
  1. ACETAMINOPHEN/OXYCODONE [Suspect]
     Active Substance: ACETAMINOPHEN\OXYCODONE HYDROCHLORIDE
  2. ENBREL [Suspect]
     Active Substance: ETANERCEPT
     Indication: RHEUMATOID ARTHRITIS
     Route: 058
  3. IBUPROFEN. [Concomitant]
     Active Substance: IBUPROFEN
  4. VITAMIN D3 [Concomitant]
     Active Substance: CHOLECALCIFEROL
  5. ACETAMINOPHEN. [Suspect]
     Active Substance: ACETAMINOPHEN
  6. CIMZIA [Suspect]
     Active Substance: CERTOLIZUMAB PEGOL
     Dosage: 400 MG
     Route: 058
  7. PANTOPRAZOLE [Concomitant]
     Active Substance: PANTOPRAZOLE
  8. LEFLUNOMIDE. [Suspect]
     Active Substance: LEFLUNOMIDE
  9. ORENCIA [Suspect]
     Active Substance: ABATACEPT
  10. FISH OIL [Concomitant]
     Active Substance: FISH OIL
  11. VITAMIN D [COLECALCIFEROL] [Concomitant]
     Active Substance: CHOLECALCIFEROL
  12. CHLORHEXIDINE [Suspect]
     Active Substance: CHLORHEXIDINE
  13. METHOTREXATE. [Suspect]
     Active Substance: METHOTREXATE
  14. SIMPONI [Suspect]
     Active Substance: GOLIMUMAB
     Route: 058
  15. HYDROXYCHLOROQUINE [Concomitant]
     Active Substance: HYDROXYCHLOROQUINE
  16. ZOPICLONE [Concomitant]
     Active Substance: ZOPICLONE
  17. ARAVA [Suspect]
     Active Substance: LEFLUNOMIDE
  18. ERGOCALCIFEROL. [Concomitant]
     Active Substance: ERGOCALCIFEROL
  19. HYDROXYCHLOROQUINE SULFATE. [Concomitant]
     Active Substance: HYDROXYCHLOROQUINE SULFATE
  20. PANTOLOC [Concomitant]
     Active Substance: PANTOPRAZOLE SODIUM
  21. VENTOLIN [Concomitant]
     Active Substance: ALBUTEROL SULFATE
  22. ACETAMINOPHEN/OXYCODONE HYDROCHLORIDE/OXYCODONE TEREPHTHALATE [Suspect]
     Active Substance: ACETAMINOPHEN\OXYCODONE HYDROCHLORIDE\OXYCODONE TEREPHTHALATE
  23. PREDNISONE. [Concomitant]
     Active Substance: PREDNISONE
  24. VITAMIN C [Concomitant]
     Active Substance: ASCORBIC ACID
  25. ACTEMRA [Suspect]
     Active Substance: TOCILIZUMAB
  26. OXYCODONE [Suspect]
     Active Substance: OXYCODONE
  27. CETIRIZINE HYDROCHLORIDE. [Concomitant]
     Active Substance: CETIRIZINE HYDROCHLORIDE
  28. D-ALPHA TOCOPHEROL [Concomitant]
     Active Substance: .ALPHA.-TOCOPHEROL, D-
  29. DESOGESTREL/ETHINYL ESTRADIOL [Concomitant]
     Active Substance: DESOGESTREL\ETHINYL ESTRADIOL
  30. TYLENOL [Concomitant]
     Active Substance: ACETAMINOPHEN
  31. CIMZIA [Suspect]
     Active Substance: CERTOLIZUMAB PEGOL
     Indication: RHEUMATOID ARTHRITIS
     Dosage: 200 MG
     Route: 058
  32. COENZYME Q10 [Concomitant]
     Active Substance: UBIDECARENONE

REACTIONS (21)
  - Night sweats [Unknown]
  - Urticaria [Unknown]
  - Diarrhoea [Unknown]
  - Headache [Unknown]
  - Peripheral swelling [Unknown]
  - Respiratory disorder [Unknown]
  - Abdominal pain upper [Unknown]
  - Ear pain [Unknown]
  - Off label use [Unknown]
  - Asthenia [Unknown]
  - Insomnia [Unknown]
  - Pain [Unknown]
  - Back pain [Unknown]
  - Body temperature increased [Unknown]
  - Rash [Unknown]
  - Vomiting [Unknown]
  - Joint swelling [Unknown]
  - Sinusitis [Unknown]
  - Lower respiratory tract infection [Unknown]
  - Pruritus [Unknown]
  - Muscle spasticity [Unknown]
